FAERS Safety Report 10573306 (Version 1)
Quarter: 2014Q4

REPORT INFORMATION
  Report Type: Spontaneous
  Country: KR (occurrence: None)
  Receive Date: 20141030
  Receipt Date: 20141030
  Transmission Date: 20150529
  Serious: Yes (Hospitalization)
  Sender: FDA-Public Use
  Company Number: PHHY2014KR108227

PATIENT
  Sex: Male

DRUGS (1)
  1. SEBIVO [Suspect]
     Active Substance: TELBIVUDINE
     Indication: HEPATITIS B
     Dosage: DAILY, ABOUT 15 DAYS, ORAL
     Route: 048
     Dates: start: 201406, end: 2014

REACTIONS (2)
  - Myalgia [None]
  - Liver disorder [None]

NARRATIVE: CASE EVENT DATE: 201406
